FAERS Safety Report 16690213 (Version 2)
Quarter: 2019Q3

REPORT INFORMATION
  Report Type: Report from Study
  Country: US (occurrence: US)
  Receive Date: 20190809
  Receipt Date: 20190917
  Transmission Date: 20191004
  Serious: No
  Sender: FDA-Public Use
  Company Number: US-SHIRE-US201925982

PATIENT
  Sex: Male

DRUGS (2)
  1. ELAPRASE [Suspect]
     Active Substance: IDURSULFASE
     Indication: MUCOPOLYSACCHARIDOSIS II
     Dosage: 11 DOSAGE FORM, 1X/WEEK
     Route: 042
     Dates: start: 20061121
  2. ELAPRASE [Suspect]
     Active Substance: IDURSULFASE
     Dosage: 66 DOSAGE FORM, 1X/WEEK
     Route: 042
     Dates: start: 20160107

REACTIONS (2)
  - Inappropriate schedule of product administration [Unknown]
  - Foot fracture [Recovering/Resolving]
